FAERS Safety Report 11760303 (Version 5)
Quarter: 2016Q1

REPORT INFORMATION
  Report Type: Report from Study
  Country: US (occurrence: US)
  Receive Date: 20151120
  Receipt Date: 20160122
  Transmission Date: 20160525
  Serious: Yes (Other)
  Sender: FDA-Public Use
  Company Number: US-AMGEN-USASL2015120928

PATIENT
  Age: 57 Year
  Sex: Female

DRUGS (1)
  1. ENBREL [Suspect]
     Active Substance: ETANERCEPT
     Indication: RHEUMATOID ARTHRITIS
     Dosage: UNK UNK, QWK
     Route: 065
     Dates: start: 201509

REACTIONS (16)
  - Impaired gastric emptying [Unknown]
  - Drug withdrawal syndrome [Unknown]
  - Pain in extremity [Unknown]
  - Weight decreased [Unknown]
  - Injection site discomfort [Unknown]
  - Swelling [Recovering/Resolving]
  - Pain [Unknown]
  - Bronchitis [Unknown]
  - Malaise [Unknown]
  - Arthralgia [Unknown]
  - Gait disturbance [Unknown]
  - Musculoskeletal stiffness [Unknown]
  - Drug dose omission [Unknown]
  - Drug effect decreased [Unknown]
  - Injection site pain [Unknown]
  - Condition aggravated [Unknown]

NARRATIVE: CASE EVENT DATE: 2015
